FAERS Safety Report 10399524 (Version 2)
Quarter: 2014Q3

REPORT INFORMATION
  Report Type: Spontaneous
  Country: ES (occurrence: ES)
  Receive Date: 20140821
  Receipt Date: 20140827
  Transmission Date: 20150326
  Serious: Yes (Life-Threatening, Hospitalization)
  Sender: FDA-Public Use
  Company Number: ES-PFIZER INC-2014232475

PATIENT
  Sex: Male

DRUGS (3)
  1. CALCIUM FOLINATE [Suspect]
     Active Substance: LEUCOVORIN CALCIUM
     Dosage: 330 MG, 1X/DAY (TOTAL DAILY DOSE)
     Route: 048
  2. FLUOROURACIL. [Suspect]
     Active Substance: FLUOROURACIL
     Dosage: 660 MG, 1X/DAY (TOTAL DAILY DOSE)
     Route: 048
  3. CAMPTO [Suspect]
     Active Substance: IRINOTECAN
     Dosage: 295 MG, 1X/DAY (TOTAL DAILY DOSE)
     Route: 042
     Dates: start: 20031217

REACTIONS (4)
  - Mucosal inflammation [Recovered/Resolved]
  - Anxiety [Recovered/Resolved]
  - Depression [Recovered/Resolved]
  - Anaemia [Recovered/Resolved]

NARRATIVE: CASE EVENT DATE: 20031230
